FAERS Safety Report 5726352-8 (Version None)
Quarter: 2008Q2

REPORT INFORMATION
  Report Type: 
  Country: None (occurrence: None)
  Receive Date: 20080502
  Receipt Date: 20080422
  Transmission Date: 20081010
  Serious: Yes (Life-Threatening, Hospitalization)
  Sender: FDA-Public Use
  Company Number: DE-ABBOTT-08P-062-0449357-00

PATIENT
  Sex: Male
  Weight: 72 kg

DRUGS (6)
  1. NORVIR [Suspect]
     Indication: HIV INFECTION
     Dosage: 100MG 2 CAPSULES TWICE DAILY
     Dates: start: 20071011
  2. APTIVUS [Suspect]
     Indication: HIV INFECTION
     Dosage: 250MG 2 CAPSULES TWICE DAILY
     Route: 048
     Dates: start: 20071011
  3. TRUVADA [Concomitant]
     Indication: HIV INFECTION
     Dosage: 300/200 MG DAILY
     Route: 048
     Dates: start: 20070227
  4. STAVUDINE [Concomitant]
     Indication: HIV INFECTION
     Route: 048
     Dates: start: 20080111
  5. CELSENTRI [Concomitant]
     Indication: HIV INFECTION
     Route: 048
     Dates: start: 20080111
  6. ISENTRESS [Concomitant]
     Indication: HIV INFECTION
     Route: 048
     Dates: start: 20080111

REACTIONS (1)
  - PULMONARY ARTERY THROMBOSIS [None]
